FAERS Safety Report 16029214 (Version 1)
Quarter: 2019Q1

REPORT INFORMATION
  Report Type: Spontaneous
  Country: US (occurrence: US)
  Receive Date: 20190304
  Receipt Date: 20190304
  Transmission Date: 20190418
  Serious: No
  Sender: FDA-Public Use
  Company Number: US-SA-2019SA056756

PATIENT
  Age: 14 Year
  Sex: Male
  Weight: 57.61 kg

DRUGS (15)
  1. CETRIZINE [Concomitant]
     Active Substance: CETIRIZINE HYDROCHLORIDE
     Dosage: 10 MG
     Route: 048
     Dates: start: 20190128
  2. HEPARIN [Concomitant]
     Active Substance: HEPARIN SODIUM
     Dosage: 100 ML
     Route: 042
     Dates: start: 20190129
  3. AZITHROMYCIN ANHYDROUS. [Concomitant]
     Active Substance: AZITHROMYCIN ANHYDROUS
     Dosage: 1 DF
     Route: 048
     Dates: start: 20190110
  4. ZOFRAN [Concomitant]
     Active Substance: ONDANSETRON HYDROCHLORIDE
     Dosage: 1 DF, PRN
     Route: 048
     Dates: start: 20150602
  5. MOTRIN [Concomitant]
     Active Substance: IBUPROFEN
     Dosage: 1 DF, PRN
     Route: 048
     Dates: start: 20150602
  6. PREDNISONE. [Concomitant]
     Active Substance: PREDNISONE
     Dosage: 1 DF
     Route: 048
     Dates: start: 20190110
  7. ROBITUSSIN [MENTHOL] [Concomitant]
     Active Substance: MENTHOL
     Dosage: 20 ML, BID
     Route: 048
     Dates: start: 20181203
  8. NORMAL SALINE [Concomitant]
     Active Substance: SODIUM CHLORIDE
     Dosage: UNK
     Route: 042
     Dates: start: 20190129
  9. EPINEPHRINE. [Concomitant]
     Active Substance: EPINEPHRINE
     Dosage: 0.3 MG
     Route: 030
     Dates: start: 20190129
  10. CETRIZINE [Concomitant]
     Active Substance: CETIRIZINE HYDROCHLORIDE
     Dosage: 10 UNK
     Route: 048
     Dates: start: 20181010
  11. FABRAZYME [Suspect]
     Active Substance: AGALSIDASE BETA
     Indication: FABRY^S DISEASE
     Dosage: 0.95 MG/KG, QOW
     Route: 041
     Dates: start: 20150818
  12. SODIUM CHLORIDE. [Concomitant]
     Active Substance: SODIUM CHLORIDE
     Dosage: UNK
     Route: 042
     Dates: start: 20190129
  13. STERILE WATER [Concomitant]
     Active Substance: WATER
     Dosage: 11 ML
     Route: 042
     Dates: start: 20190129
  14. LIDOCAINE. [Concomitant]
     Active Substance: LIDOCAINE
     Dosage: UNK %
     Route: 058
     Dates: start: 20190129
  15. AMITRIPTYLINE [Concomitant]
     Active Substance: AMITRIPTYLINE
     Dosage: 1 DF
     Route: 048
     Dates: start: 20180927

REACTIONS (1)
  - Blood iron decreased [Not Recovered/Not Resolved]
